FAERS Safety Report 5091829-8 (Version None)
Quarter: 2006Q3

REPORT INFORMATION
  Report Type: 
  Country: None (occurrence: None)
  Receive Date: 20060829
  Receipt Date: 20060623
  Transmission Date: 20061208
  Serious: Yes (Life-Threatening, Hospitalization)
  Sender: FDA-Public Use
  Company Number: US-BRISTOL-MYERS SQUIBB COMPANY-13422555

PATIENT
  Age: 42 Year
  Sex: Male

DRUGS (1)
  1. ERBITUX [Suspect]
     Route: 042
     Dates: start: 20060317, end: 20060317

REACTIONS (5)
  - COMA [None]
  - DYSPNOEA [None]
  - PULSE ABSENT [None]
  - RESTLESSNESS [None]
  - VOMITING [None]
